FAERS Safety Report 19897619 (Version 10)
Quarter: 2022Q4

REPORT INFORMATION
  Report Type: Spontaneous
  Country: DE (occurrence: DE)
  Receive Date: 20210930
  Receipt Date: 20221128
  Transmission Date: 20230113
  Serious: Yes (Life-Threatening, Hospitalization, Other)
  Sender: FDA-Public Use
  Company Number: DE-002147023-NVSC2021DE208861

PATIENT
  Age: 85 Year
  Sex: Female

DRUGS (14)
  1. LETROZOLE [Suspect]
     Active Substance: LETROZOLE
     Indication: Breast cancer metastatic
     Dosage: 2.5 MILLIGRAM, ONCE A DAY
     Route: 048
     Dates: start: 20200415
  2. LETROZOLE [Suspect]
     Active Substance: LETROZOLE
     Dosage: 2.5 MILLIGRAM, ONCE A DAY
     Route: 048
     Dates: start: 20200420
  3. HEPARIN [Suspect]
     Active Substance: HEPARIN SODIUM
     Indication: Atrial fibrillation
     Dosage: 7500  INTERNATIONAL UNIT(ONCE IN THE MORNING, ONCE IN THE NOON, ONCE IN THE AFTERNOON)
     Route: 058
     Dates: start: 20210807, end: 20211015
  4. KISQALI [Suspect]
     Active Substance: RIBOCICLIB
     Indication: Breast cancer metastatic
     Dosage: 600 MILLIGRAM, ONCE A DAY (SCHEMA 21 DAYS INTAKE, 7 DAYS PAUSE)
     Route: 048
     Dates: start: 20210401
  5. KISQALI [Suspect]
     Active Substance: RIBOCICLIB
     Dosage: 600 MILLIGRAM, ONCE A DAY (SCHEMA 21 DAYS INTAKE, 7 DAYS PAUSE)
     Route: 048
     Dates: start: 20200415
  6. KISQALI [Suspect]
     Active Substance: RIBOCICLIB
     Dosage: 600 MILLIGRAM, ONCE A DAY (SCHEMA 21 DAYS INTAKE, 7 DAYS PAUSE)
     Route: 048
     Dates: start: 20200420
  7. KISQALI [Suspect]
     Active Substance: RIBOCICLIB
     Dosage: 600 MILLIGRAM, CYCLICAL
     Route: 048
     Dates: start: 20210401, end: 20210618
  8. KISQALI [Suspect]
     Active Substance: RIBOCICLIB
     Dosage: 600 MILLIGRAM, CYCLICAL
     Route: 048
     Dates: start: 20210415, end: 20210618
  9. ZOMETA [Suspect]
     Active Substance: ZOLEDRONIC ACID
     Indication: Bone disorder
     Dosage: 4 MILLIGRAM(4 MG, Q4W )
     Route: 042
     Dates: start: 20120328
  10. ZOMETA [Suspect]
     Active Substance: ZOLEDRONIC ACID
     Indication: Prophylaxis
  11. TORSEMIDE [Concomitant]
     Active Substance: TORSEMIDE
     Indication: Product used for unknown indication
     Dosage: 5 MILLIGRAM, ONCE A DAY ((1 X DAILY MORNING) )
     Route: 065
  12. VITAMIN D3 [Concomitant]
     Active Substance: CHOLECALCIFEROL
     Indication: Product used for unknown indication
     Dosage: UNK
     Route: 065
  13. OMEPRAZOLE [Concomitant]
     Active Substance: OMEPRAZOLE
     Indication: Product used for unknown indication
     Dosage: UNK
     Route: 065
  14. HALOPERIDOL [Concomitant]
     Active Substance: HALOPERIDOL
     Indication: Product used for unknown indication
     Dosage: UNK
     Route: 065

REACTIONS (14)
  - End stage renal disease [Recovering/Resolving]
  - Blood creatinine increased [Not Recovered/Not Resolved]
  - Anaemia [Recovering/Resolving]
  - Lower gastrointestinal haemorrhage [Recovered/Resolved]
  - Urinary tract infection [Recovered/Resolved]
  - Atrial fibrillation [Not Recovered/Not Resolved]
  - Hepatic cirrhosis [Not Recovered/Not Resolved]
  - Chronic kidney disease [Recovering/Resolving]
  - Decreased appetite [Unknown]
  - Metabolic acidosis [Recovering/Resolving]
  - Varices oesophageal [Not Recovered/Not Resolved]
  - Escherichia urinary tract infection [Recovered/Resolved]
  - Dehydration [Unknown]
  - Tachycardia [Unknown]

NARRATIVE: CASE EVENT DATE: 20210512
